FAERS Safety Report 7513231-9 (Version None)
Quarter: 2011Q2

REPORT INFORMATION
  Report Type: 
  Country: None (occurrence: None)
  Receive Date: 20110531
  Receipt Date: 20110119
  Transmission Date: 20111010
  Serious: Yes (Hospitalization, Other)
  Sender: FDA-Public Use
  Company Number: US-BAYER-201032560NA

PATIENT
  Age: 32 Year
  Sex: Female
  Weight: 122 kg

DRUGS (6)
  1. BIAXIN [Concomitant]
     Indication: PNEUMONIA
     Route: 048
  2. YAZ [Suspect]
     Indication: PRODUCT USED FOR UNKNOWN INDICATION
     Route: 048
     Dates: start: 20020901
  3. ZITHROMAX [Concomitant]
     Indication: SINUSITIS
     Dosage: UNK
     Dates: start: 20051216
  4. YASMIN [Suspect]
     Indication: MENSTRUAL CYCLE MANAGEMENT
     Dosage: UNK UNK, UNK
     Route: 048
     Dates: start: 20021001, end: 20021201
  5. ANTIBIOTICS [Concomitant]
     Indication: NASOPHARYNGITIS
  6. ANALGESICS [Concomitant]
     Indication: CHEST PAIN
     Dosage: UNK
     Dates: start: 20051216

REACTIONS (8)
  - ANXIETY [None]
  - OEDEMA PERIPHERAL [None]
  - VENOUS INSUFFICIENCY [None]
  - BURNING SENSATION [None]
  - THROMBOPHLEBITIS SUPERFICIAL [None]
  - DEEP VEIN THROMBOSIS [None]
  - PAIN IN EXTREMITY [None]
  - POST THROMBOTIC SYNDROME [None]
